FAERS Safety Report 9655749 (Version 1)
Quarter: 2013Q4

REPORT INFORMATION
  Report Type: Spontaneous
  Country: US (occurrence: US)
  Receive Date: 20131030
  Receipt Date: 20131030
  Transmission Date: 20140711
  Serious: No
  Sender: FDA-Public Use
  Company Number: US-BIOGENIDEC-2013BI021480

PATIENT
  Age: 59 Year
  Sex: Female

DRUGS (3)
  1. AVONEX [Suspect]
     Indication: MULTIPLE SCLEROSIS
     Route: 030
     Dates: start: 20030428
  2. AVONEX [Suspect]
     Indication: MULTIPLE SCLEROSIS
     Route: 030
     Dates: end: 20130306
  3. BETASERON [Concomitant]

REACTIONS (8)
  - Fall [Recovered/Resolved]
  - Tooth fracture [Recovered/Resolved]
  - Skeletal injury [Recovered/Resolved]
  - Meniscus injury [Not Recovered/Not Resolved]
  - Burning sensation [Recovered/Resolved]
  - Multiple sclerosis relapse [Recovered/Resolved]
  - Arthritis [Not Recovered/Not Resolved]
  - Arthralgia [Unknown]
